FAERS Safety Report 19210981 (Version 1)
Quarter: 2021Q2

REPORT INFORMATION
  Report Type: Spontaneous
  Country: BE (occurrence: BE)
  Receive Date: 20210501
  Receipt Date: 20210501
  Transmission Date: 20210717
  Serious: Yes (Other)
  Sender: FDA-Public Use
  Company Number: BE-TEVA-2021-BE-1900444

PATIENT
  Age: 55 Year
  Sex: Male
  Weight: 67 kg

DRUGS (7)
  1. BISOPROLOL [Concomitant]
     Active Substance: BISOPROLOL
     Route: 048
  2. ASAFLOW [Concomitant]
     Active Substance: ASPIRIN
     Route: 048
  3. TRISENOX [Suspect]
     Active Substance: ARSENIC TRIOXIDE
     Dosage: CONSOLIDATION DOSE OF TRISENOX WAS HALVED, 4 ENTIRE CYCLI WERE ADMINISTERED, ALL WITH HALF THE DOSE
     Route: 065
  4. TRISENOX [Suspect]
     Active Substance: ARSENIC TRIOXIDE
     Indication: PML/RAR ALPHA EXPRESSION
     Route: 042
     Dates: start: 20180719, end: 20180813
  5. ATRA [Suspect]
     Active Substance: TRETINOIN
     Dosage: INDUCTION TREATMENT
     Route: 048
     Dates: start: 20180719
  6. TOTALIP [Concomitant]
     Active Substance: ATORVASTATIN
     Route: 048
  7. BURINEX [Concomitant]
     Active Substance: BUMETANIDE
     Route: 048

REACTIONS (14)
  - Hepatic function abnormal [Recovered/Resolved]
  - Urinary tract infection [Recovered/Resolved]
  - White blood cell count increased [Unknown]
  - Platelet count decreased [Unknown]
  - Hepatic enzyme abnormal [Recovering/Resolving]
  - Haemoglobin decreased [Recovering/Resolving]
  - C-reactive protein increased [Recovering/Resolving]
  - White blood cell count decreased [Recovered/Resolved]
  - Asthenia [Unknown]
  - Myelocyte present [Unknown]
  - Myocardial infarction [Unknown]
  - Ejection fraction decreased [Unknown]
  - Pancytopenia [Recovered/Resolved]
  - Fluid retention [Recovered/Resolved]
